FAERS Safety Report 18363784 (Version 2)
Quarter: 2020Q4

REPORT INFORMATION
  Report Type: Report from Study
  Country: DE (occurrence: DE)
  Receive Date: 20201009
  Receipt Date: 20201210
  Transmission Date: 20210114
  Serious: Yes (Death, Hospitalization, Other)
  Sender: FDA-Public Use
  Company Number: DE-JNJFOC-20200813160

PATIENT
  Age: 81 Year
  Sex: Female
  Weight: 66 kg

DRUGS (5)
  1. DEXAMETHASONE. [Suspect]
     Active Substance: DEXAMETHASONE
     Indication: PLASMA CELL MYELOMA
     Route: 065
     Dates: start: 20200803
  2. OXYGEN. [Concomitant]
     Active Substance: OXYGEN
     Dosage: 5 UNITS
     Dates: start: 20200803, end: 20200803
  3. FURESIS [Concomitant]
     Active Substance: FUROSEMIDE
     Route: 042
     Dates: start: 20200803, end: 20200803
  4. DARZALEX [Suspect]
     Active Substance: DARATUMUMAB
     Indication: PLASMA CELL MYELOMA
     Route: 042
     Dates: start: 20200803
  5. PREDNISOLUT                        /00016203/ [Concomitant]
     Route: 042
     Dates: start: 20200803, end: 20200803

REACTIONS (6)
  - Haemorrhagic diathesis [Unknown]
  - Tumour lysis syndrome [Unknown]
  - Plasma cell myeloma [Unknown]
  - Pleural effusion [Not Recovered/Not Resolved]
  - Cardiac failure [Fatal]
  - Infusion related reaction [Not Recovered/Not Resolved]

NARRATIVE: CASE EVENT DATE: 202008
